FAERS Safety Report 21179360 (Version 1)
Quarter: 2022Q3

REPORT INFORMATION
  Report Type: Spontaneous
  Country: US (occurrence: None)
  Receive Date: 20220805
  Receipt Date: 20220805
  Transmission Date: 20221027
  Serious: No
  Sender: FDA-Public Use
  Company Number: None

PATIENT
  Sex: Female

DRUGS (1)
  1. TREMFYA [Suspect]
     Active Substance: GUSELKUMAB
     Indication: Psoriatic arthropathy
     Dosage: 100MG  SC?INJECT 1 PEN UNDER THE SKIN AT WEEK 0 THEN WEEK 4 THEN EVERY 8 WEEKS THEREAFTER.
     Route: 058
     Dates: start: 20220720

REACTIONS (1)
  - Drug ineffective [None]
